FAERS Safety Report 6373643-6 (Version None)
Quarter: 2009Q3

REPORT INFORMATION
  Report Type: 
  Country: None (occurrence: None)
  Receive Date: 20090924
  Receipt Date: 20090914
  Transmission Date: 20100115
  Serious: Yes (Other)
  Sender: FDA-Public Use
  Company Number: JP-PFIZER INC-2009257971

PATIENT
  Age: 24 Year

DRUGS (3)
  1. GABAPEN [Suspect]
     Dosage: UNK
     Route: 048
  2. PHENYTOIN [Concomitant]
     Indication: CONVULSION
     Dosage: UNK
  3. PHENOBARBITAL [Concomitant]
     Indication: CONVULSION
     Dosage: UNK

REACTIONS (1)
  - STATUS EPILEPTICUS [None]
